FAERS Safety Report 13445088 (Version 1)
Quarter: 2017Q2

REPORT INFORMATION
  Report Type: Spontaneous
  Country: US (occurrence: US)
  Receive Date: 20170414
  Receipt Date: 20170414
  Transmission Date: 20170830
  Serious: Yes (Hospitalization, Other)
  Sender: FDA-Public Use
  Company Number: US-AMGEN-USASP2017043687

PATIENT
  Age: 76 Year
  Sex: Male
  Weight: 112.9 kg

DRUGS (10)
  1. ELIQUIS [Concomitant]
     Active Substance: APIXABAN
     Dosage: 5 MG, UNK
  2. ADVAIR HFA [Concomitant]
     Active Substance: FLUTICASONE PROPIONATE\SALMETEROL XINAFOATE
     Dosage: 500/50 UNK
  3. BRILINTA [Concomitant]
     Active Substance: TICAGRELOR
     Dosage: 90 MG, UNK
  4. LANTUS [Concomitant]
     Active Substance: INSULIN GLARGINE
  5. REPATHA [Suspect]
     Active Substance: EVOLOCUMAB
     Indication: TYPE V HYPERLIPIDAEMIA
     Dosage: 140 MG/ML, Q3WK
     Route: 058
     Dates: start: 201610
  6. LEVOTHYROXIN [Concomitant]
     Active Substance: LEVOTHYROXINE
     Dosage: 200 MUG, UNK
  7. PROAIR HFA [Concomitant]
     Active Substance: ALBUTEROL SULFATE
  8. ERGOCALCIFEROL. [Concomitant]
     Active Substance: ERGOCALCIFEROL
     Dosage: 50000 UNIT, UNK
  9. VENTOLIN [Concomitant]
     Active Substance: ALBUTEROL SULFATE
  10. HUMALOG [Concomitant]
     Active Substance: INSULIN LISPRO
     Dosage: 100/ML UNK, UNK

REACTIONS (4)
  - Influenza like illness [Not Recovered/Not Resolved]
  - Dyspnoea [Unknown]
  - Adverse drug reaction [Unknown]
  - Myocardial infarction [Unknown]
